FAERS Safety Report 6729957-0 (Version None)
Quarter: 2010Q2

REPORT INFORMATION
  Report Type: 
  Country: None (occurrence: None)
  Receive Date: 20100513
  Receipt Date: 20100428
  Transmission Date: 20101027
  Serious: Yes (Death)
  Sender: FDA-Public Use
  Company Number: 2009002721

PATIENT
  Age: 63 Year
  Sex: Female

DRUGS (5)
  1. ERLOTINIB (ERLOTINIB) (TABLET) (ERLOTINIB) [Suspect]
     Indication: PANCREATIC CARCINOMA METASTATIC
     Dosage: (100 MG,QD), ORAL
     Route: 048
     Dates: start: 20090709, end: 20090828
  2. GEMCITABINE [Suspect]
     Indication: PANCREATIC CARCINOMA METASTATIC
     Dosage: (1125 MG,QW,INTRAVENOUS)
     Route: 042
     Dates: start: 20090709, end: 20090828
  3. ATIVAN [Concomitant]
  4. GLIPIZIDE [Concomitant]
  5. INSULATARD NPH HUMAN [Concomitant]

REACTIONS (3)
  - FALL [None]
  - HYPOXIA [None]
  - PNEUMONIA [None]
